FAERS Safety Report 5682530-8 (Version None)
Quarter: 2008Q1

REPORT INFORMATION
  Report Type: 
  Country: None (occurrence: None)
  Receive Date: 20080327
  Receipt Date: 20071220
  Transmission Date: 20080703
  Serious: Yes (Hospitalization)
  Sender: FDA-Public Use
  Company Number: US-BRISTOL-MYERS SQUIBB COMPANY-14023006

PATIENT
  Sex: Female

DRUGS (1)
  1. SPRYCEL [Suspect]
     Indication: CHRONIC MYELOID LEUKAEMIA
     Dosage: 70 MG TWICE A DAY THEN WENT DOWN TO  1 DOSAGE FORM = 70MG + 20MG (ALTERNATING EVERY OTHER DAY)
     Dates: start: 20061001

REACTIONS (4)
  - HAEMOGLOBIN DECREASED [None]
  - PLATELET COUNT DECREASED [None]
  - URTICARIA VESICULOSA [None]
  - WHITE BLOOD CELL COUNT INCREASED [None]
